FAERS Safety Report 12451650 (Version 1)
Quarter: 2016Q2

REPORT INFORMATION
  Report Type: Spontaneous
  Country: US (occurrence: None)
  Receive Date: 20160608
  Receipt Date: 20160608
  Transmission Date: 20160815
  Serious: No
  Sender: FDA-Public Use
  Company Number: None

PATIENT
  Age: 57 Year
  Sex: Female

DRUGS (1)
  1. METHOTREXATE SDV 25MG/ML [Suspect]
     Active Substance: METHOTREXATE
     Indication: PSORIASIS

REACTIONS (3)
  - Accidental underdose [None]
  - Wrong device dispensed [None]
  - Pain [None]

NARRATIVE: CASE EVENT DATE: 20160607
